FAERS Safety Report 9724977 (Version 2)
Quarter: 2014Q1

REPORT INFORMATION
  Report Type: Report from Study
  Country: US (occurrence: US)
  Receive Date: 20131202
  Receipt Date: 20140129
  Transmission Date: 20141002
  Serious: Yes (Death)
  Sender: FDA-Public Use
  Company Number: US-ROCHE-1308881

PATIENT
  Age: 47 Year
  Sex: Male
  Weight: 67.46 kg

DRUGS (2)
  1. TARCEVA [Suspect]
     Indication: NON-SMALL CELL LUNG CANCER
     Route: 048
     Dates: start: 20130131, end: 20131023
  2. AVASTIN [Suspect]
     Indication: SMALL INTESTINE CARCINOMA
     Route: 065

REACTIONS (1)
  - Disease progression [Fatal]
